FAERS Safety Report 5420812-5 (Version None)
Quarter: 2007Q3

REPORT INFORMATION
  Report Type: 
  Country: None (occurrence: None)
  Receive Date: 20070821
  Receipt Date: 20070809
  Transmission Date: 20080115
  Serious: Yes (Death, Other)
  Sender: FDA-Public Use
  Company Number: PE-BRISTOL-MYERS SQUIBB COMPANY-13845854

PATIENT
  Age: 65 Year
  Sex: Female

DRUGS (5)
  1. ABATACEPT [Suspect]
     Indication: RHEUMATOID ARTHRITIS
     Route: 042
     Dates: start: 20030611, end: 20070613
  2. METHOTREXATE TABS [Concomitant]
     Route: 048
     Dates: start: 19980501, end: 20070711
  3. PREDNISONE TAB [Concomitant]
     Route: 048
     Dates: start: 19980501, end: 20070806
  4. CELECOXIB [Concomitant]
     Dates: start: 19980501, end: 20070806
  5. FOLIC ACID [Concomitant]
     Dates: start: 20030508

REACTIONS (2)
  - MYELODYSPLASTIC SYNDROME [None]
  - STAPHYLOCOCCAL BACTERAEMIA [None]
